FAERS Safety Report 4309552-3 (Version None)
Quarter: 2004Q1

REPORT INFORMATION
  Report Type: 
  Country: None (occurrence: None)
  Receive Date: 20040302
  Receipt Date: 20040223
  Transmission Date: 20041129
  Serious: Yes (Hospitalization)
  Sender: FDA-Public Use
  Company Number: US-JNJFOC-20040105957

PATIENT
  Age: 46 Year
  Sex: Female
  Weight: 97.0698 kg

DRUGS (6)
  1. TOPAMAX [Suspect]
     Indication: BIPOLAR DISORDER
     Dosage: 200 MG, 2 IN 1 DAY
     Dates: start: 20030801
  2. TOPAMAX [Suspect]
     Indication: DISSOCIATIVE DISORDER
     Dosage: 200 MG, 2 IN 1 DAY
     Dates: start: 20030801
  3. TOPAMAX [Suspect]
     Indication: SCHIZOAFFECTIVE DISORDER
     Dosage: 200 MG, 2 IN 1 DAY
     Dates: start: 20030801
  4. TRAZODONE HCL [Suspect]
     Indication: INSOMNIA
     Dosage: 150 MG, IN 1 DAY
  5. ZOLOFT [Concomitant]
  6. XANAX [Concomitant]

REACTIONS (2)
  - OVERDOSE [None]
  - SUICIDE ATTEMPT [None]
